FAERS Safety Report 8366692-X (Version None)
Quarter: 2012Q2

REPORT INFORMATION
  Report Type: 
  Country: None (occurrence: None)
  Receive Date: 20120517
  Receipt Date: 20120514
  Transmission Date: 20120825
  Serious: No
  Sender: FDA-Public Use
  Company Number: US-PFIZER INC-2012117804

PATIENT
  Sex: Male

DRUGS (2)
  1. LYRICA [Suspect]
     Dosage: UNK
     Dates: start: 20100101
  2. NICOTROL [Suspect]
     Dosage: UNK
     Route: 045

REACTIONS (1)
  - AMNESIA [None]
